FAERS Safety Report 15907871 (Version 4)
Quarter: 2019Q4

REPORT INFORMATION
  Report Type: Spontaneous
  Country: JP (occurrence: JP)
  Receive Date: 20190204
  Receipt Date: 20191029
  Transmission Date: 20200122
  Serious: Yes (Death, Hospitalization, Other)
  Sender: FDA-Public Use
  Company Number: JP-ASTRAZENECA-2019SE20141

PATIENT
  Age: 76 Year
  Sex: Female
  Weight: 41 kg

DRUGS (1)
  1. TAGRISSO [Suspect]
     Active Substance: OSIMERTINIB
     Indication: NON-SMALL CELL LUNG CANCER
     Route: 048
     Dates: start: 20181203, end: 20190122

REACTIONS (7)
  - Thrombophlebitis migrans [Unknown]
  - Diarrhoea [Recovered/Resolved]
  - Interstitial lung disease [Fatal]
  - Pulmonary embolism [Fatal]
  - Fall [Unknown]
  - Femur fracture [Unknown]
  - Cerebral infarction [Fatal]

NARRATIVE: CASE EVENT DATE: 20181221
